FAERS Safety Report 23276716 (Version 1)
Quarter: 2023Q4

REPORT INFORMATION
  Report Type: Spontaneous
  Country: US (occurrence: US)
  Receive Date: 20231208
  Receipt Date: 20231208
  Transmission Date: 20240109
  Serious: No
  Sender: FDA-Public Use
  Company Number: US-AMERICAN REGENT INC-2023000425

PATIENT
  Age: 49 Year
  Sex: Female
  Weight: 91.61 kg

DRUGS (10)
  1. VENOFER [Suspect]
     Active Substance: IRON SUCROSE
     Indication: Iron deficiency anaemia
     Dosage: 200 MILLIGRAM IN 100 CC NSS
     Route: 042
     Dates: start: 20190523, end: 20190523
  2. VENOFER [Suspect]
     Active Substance: IRON SUCROSE
     Dosage: 200 MILLIGRAM IN 100 CC NSS
     Route: 042
     Dates: start: 20190530, end: 20190530
  3. VENOFER [Suspect]
     Active Substance: IRON SUCROSE
     Dosage: 200 MILLIGRAM IN 100 CC NSS
     Route: 042
     Dates: start: 20190607, end: 20190607
  4. VENOFER [Suspect]
     Active Substance: IRON SUCROSE
     Dosage: 200 MILLIGRAM IN 100 CC NSS
     Route: 042
     Dates: start: 20190612, end: 20190612
  5. VENOFER [Suspect]
     Active Substance: IRON SUCROSE
     Dosage: 200 MILLIGRAM IN 100 CC NSS
     Route: 042
     Dates: start: 20190620, end: 20190620
  6. VENOFER [Suspect]
     Active Substance: IRON SUCROSE
     Dosage: 200 MILLIGRAM IN 100 CC NSS
     Route: 042
     Dates: start: 20190626, end: 20190626
  7. VENOFER [Suspect]
     Active Substance: IRON SUCROSE
     Dosage: 200 MILLIGRAM IN 100 CC NSS
     Route: 042
     Dates: start: 20200309, end: 20200309
  8. VENOFER [Suspect]
     Active Substance: IRON SUCROSE
     Dosage: 200 MILLIGRAM IN 100 CC NSS
     Route: 042
     Dates: start: 20200316, end: 20200316
  9. VENOFER [Suspect]
     Active Substance: IRON SUCROSE
     Dosage: 200 MILLIGRAM IN 100 CC NSS
     Route: 042
     Dates: start: 20200323, end: 20200323
  10. VENOFER [Suspect]
     Active Substance: IRON SUCROSE
     Dosage: 200 MILLIGRAM IN 100 CC NSS
     Route: 042
     Dates: start: 20200330, end: 20200330

REACTIONS (2)
  - Pain in extremity [Unknown]
  - Incorrect product administration duration [Recovered/Resolved]

NARRATIVE: CASE EVENT DATE: 20190523
